FAERS Safety Report 20853776 (Version 1)
Quarter: 2022Q2

REPORT INFORMATION
  Report Type: Spontaneous
  Country: US (occurrence: None)
  Receive Date: 20220519
  Receipt Date: 20220519
  Transmission Date: 20220720
  Serious: Yes (Hospitalization)
  Sender: FDA-Public Use
  Company Number: None

PATIENT
  Age: 64 Year
  Sex: Female

DRUGS (4)
  1. HUMIRA [Suspect]
     Active Substance: ADALIMUMAB
     Indication: Psoriasis
     Dosage: OTHER FREQUENCY : OTHER;?
     Route: 058
     Dates: start: 202107, end: 202205
  2. Calcipotriene Oint. [Concomitant]
  3. Mupirocin oint. [Concomitant]
  4. VITAMINS [Concomitant]
     Active Substance: VITAMINS

REACTIONS (5)
  - Therapeutic product effect incomplete [None]
  - Disease progression [None]
  - Psoriatic arthropathy [None]
  - Swelling [None]
  - Infection [None]

NARRATIVE: CASE EVENT DATE: 20220512
